FAERS Safety Report 15075121 (Version 1)
Quarter: 2018Q2

REPORT INFORMATION
  Report Type: Spontaneous
  Country: US (occurrence: US)
  Receive Date: 20180627
  Receipt Date: 20180627
  Transmission Date: 20180711
  Serious: Yes (Other)
  Sender: FDA-Public Use
  Company Number: US-SAOL THERAPEUTICS-2017SAO03465

PATIENT
  Sex: Female

DRUGS (1)
  1. COMPOUNDED BACLOFEN [Suspect]
     Active Substance: BACLOFEN
     Indication: PAIN
     Dosage: 50 ?G, \DAY
     Route: 037

REACTIONS (3)
  - Off label use [Unknown]
  - Pain in extremity [Recovered/Resolved]
  - Complication associated with device [Unknown]
